FAERS Safety Report 8301576-4 (Version None)
Quarter: 2012Q2

REPORT INFORMATION
  Report Type: 
  Country: None (occurrence: None)
  Receive Date: 20120420
  Receipt Date: 20120411
  Transmission Date: 20120825
  Serious: Yes (Hospitalization)
  Sender: FDA-Public Use
  Company Number: CA-JNJFOC-20120405761

PATIENT
  Sex: Male
  Weight: 80.8 kg

DRUGS (10)
  1. GLYBURIDE [Concomitant]
     Route: 065
  2. HYDROCHLOROTHIAZIDE [Concomitant]
     Route: 065
  3. REMICADE [Suspect]
     Indication: CROHN'S DISEASE
     Route: 042
     Dates: start: 20111107
  4. LIPITOR [Concomitant]
     Route: 065
  5. REMICADE [Suspect]
     Route: 042
     Dates: start: 20120215
  6. METFORMIN HCL [Concomitant]
     Route: 065
  7. INSULIN [Concomitant]
     Route: 065
  8. AZATHIOPRINE [Concomitant]
     Route: 065
  9. ASPIRIN [Concomitant]
     Route: 065
  10. RAMIPRIL [Concomitant]
     Route: 065

REACTIONS (2)
  - WEIGHT DECREASED [None]
  - CROHN'S DISEASE [None]
